FAERS Safety Report 23638116 (Version 1)
Quarter: 2024Q1

REPORT INFORMATION
  Report Type: Spontaneous
  Country: DK (occurrence: DK)
  Receive Date: 20240315
  Receipt Date: 20240315
  Transmission Date: 20240410
  Serious: Yes (Life-Threatening, Hospitalization)
  Sender: FDA-Public Use
  Company Number: None

PATIENT
  Age: 76 Year
  Sex: Female

DRUGS (5)
  1. SYNJARDY [Suspect]
     Active Substance: EMPAGLIFLOZIN\METFORMIN HYDROCHLORIDE
     Indication: Type 2 diabetes mellitus
     Dosage: STRENGTH: 5 MG / 1000 MG?UNIT DOSE 2?FREQUENCY TIME 1 DAY
     Route: 048
     Dates: start: 2018, end: 20220525
  2. ENALAPRIL ^KRKA^ [Concomitant]
     Indication: Hypertension
     Dates: start: 20180319
  3. METOCLOPRAMIDE HYDROCHLORIDE [Concomitant]
     Active Substance: METOCLOPRAMIDE HYDROCHLORIDE
     Indication: Nausea
     Dates: start: 20190730
  4. PROPRANOLOL ^DAK^ [Concomitant]
     Indication: Tremor
     Dates: start: 20220324
  5. ACETAMINOPHEN [Concomitant]
     Active Substance: ACETAMINOPHEN
     Indication: Pain
     Dates: start: 20110223

REACTIONS (4)
  - General physical health deterioration [Unknown]
  - Vomiting [Unknown]
  - Hypophagia [Unknown]
  - Diabetic ketoacidosis [Recovered/Resolved]

NARRATIVE: CASE EVENT DATE: 20220501
